FAERS Safety Report 17495008 (Version 6)
Quarter: 2024Q1

REPORT INFORMATION
  Report Type: Spontaneous
  Country: US (occurrence: US)
  Receive Date: 20200303
  Receipt Date: 20240322
  Transmission Date: 20240410
  Serious: Yes (Hospitalization, Other)
  Sender: FDA-Public Use
  Company Number: US-AMNEAL PHARMACEUTICALS-2019-IPXL-01108

PATIENT
  Age: 59 Year
  Sex: Male

DRUGS (6)
  1. RYTARY [Suspect]
     Active Substance: CARBIDOPA\LEVODOPA
     Indication: Product used for unknown indication
     Dosage: 3 CAPSULES, TID
     Route: 048
     Dates: end: 20211227
  2. RYTARY [Suspect]
     Active Substance: CARBIDOPA\LEVODOPA
     Dosage: 3 CAPSULES, 4 /DAY
     Route: 048
     Dates: start: 20190508
  3. RYTARY [Suspect]
     Active Substance: CARBIDOPA\LEVODOPA
     Dosage: 3 CAPSULES, TID
     Route: 048
  4. RYTARY [Suspect]
     Active Substance: CARBIDOPA\LEVODOPA
     Dosage: UNK
     Route: 048
     Dates: end: 20220106
  5. RYTARY [Suspect]
     Active Substance: CARBIDOPA\LEVODOPA
     Dosage: 3 CAPSULES TID AND TAKES EXTRA DOSE OF NEEDED
     Route: 048
     Dates: end: 20221210
  6. RYTARY [Suspect]
     Active Substance: CARBIDOPA\LEVODOPA
     Dosage: 3 CAPSULES, 3 /DAY
     Route: 048

REACTIONS (14)
  - Urinary tract infection [Unknown]
  - Adverse drug reaction [Unknown]
  - Pain [Unknown]
  - Fall [Unknown]
  - Parkinson^s disease [Not Recovered/Not Resolved]
  - Tremor [Recovering/Resolving]
  - Gait inability [Recovering/Resolving]
  - Product use issue [Unknown]
  - Prescribed overdose [Unknown]
  - Intentional overdose [Unknown]
  - Urinary incontinence [Unknown]
  - On and off phenomenon [Not Recovered/Not Resolved]
  - Insomnia [Recovering/Resolving]
  - Product dose omission issue [Unknown]

NARRATIVE: CASE EVENT DATE: 20190508
